FAERS Safety Report 8970047 (Version 1)
Quarter: 2012Q4

REPORT INFORMATION
  Report Type: 
  Country: CA (occurrence: US)
  Receive Date: 20121218
  Receipt Date: 20121218
  Transmission Date: 20130627
  Serious: No
  Sender: FDA-Public Use
  Company Number: US-ABBOTT-12P-163-0903867-00

PATIENT
  Age: 46 Year
  Sex: Female

DRUGS (1)
  1. PROMETRIUM [Suspect]
     Indication: MENOPAUSAL SYMPTOMS
     Dosage: Once daily at bedtime
     Dates: start: 201201

REACTIONS (6)
  - Tachycardia [Unknown]
  - Palpitations [Unknown]
  - Chest pain [Unknown]
  - Inappropriate schedule of drug administration [Unknown]
  - Inappropriate schedule of drug administration [Unknown]
  - Drug interaction [Unknown]
